FAERS Safety Report 6292405-1 (Version None)
Quarter: 2009Q3

REPORT INFORMATION
  Report Type: 
  Country: None (occurrence: None)
  Receive Date: 20090731
  Receipt Date: 20090728
  Transmission Date: 20100115
  Serious: Yes (Death, Hospitalization)
  Sender: FDA-Public Use
  Company Number: PHHY2009CA18859

PATIENT
  Sex: Male

DRUGS (1)
  1. SANDOSTATIN LAR [Suspect]
     Indication: NEUROENDOCRINE TUMOUR
     Dosage: 30 MG, QMO
     Route: 030
     Dates: start: 20090324

REACTIONS (7)
  - ABASIA [None]
  - EATING DISORDER [None]
  - GENERAL PHYSICAL HEALTH DETERIORATION [None]
  - HAEMOPTYSIS [None]
  - LIVER DISORDER [None]
  - MELAENA [None]
  - RENAL IMPAIRMENT [None]
